FAERS Safety Report 21985016 (Version 1)
Quarter: 2023Q1

REPORT INFORMATION
  Report Type: Spontaneous
  Country: US (occurrence: US)
  Receive Date: 20230213
  Receipt Date: 20230213
  Transmission Date: 20230417
  Serious: Yes (Other)
  Sender: FDA-Public Use
  Company Number: US-Accord-299263

PATIENT
  Age: 52 Year
  Sex: Male
  Weight: 129.3 kg

DRUGS (29)
  1. GLIPIZIDE [Suspect]
     Active Substance: GLIPIZIDE
     Indication: Product used for unknown indication
     Route: 065
  2. ONDANSETRON [Suspect]
     Active Substance: ONDANSETRON
     Indication: Product used for unknown indication
     Route: 065
  3. MIFEPRISTONE [Suspect]
     Active Substance: MIFEPRISTONE
     Indication: Cushing^s syndrome
     Route: 048
     Dates: start: 20220901, end: 202209
  4. ATORVASTATIN [Concomitant]
     Active Substance: ATORVASTATIN
  5. BUPROPION [Concomitant]
     Active Substance: BUPROPION
  6. ACYCLOVIR [Concomitant]
     Active Substance: ACYCLOVIR
  7. ALBUTEROL SULFATE [Concomitant]
     Active Substance: ALBUTEROL SULFATE
  8. ALLOPURINOL [Concomitant]
     Active Substance: ALLOPURINOL
  9. ARMODAFINIL [Concomitant]
     Active Substance: ARMODAFINIL
  10. ASPIRIN [Concomitant]
     Active Substance: ASPIRIN
  11. CLOBETASOL [Concomitant]
     Active Substance: CLOBETASOL
  12. CYCLOBENZAPRINE [Concomitant]
     Active Substance: CYCLOBENZAPRINE
  13. FAMOTIDINE [Concomitant]
     Active Substance: FAMOTIDINE
  14. DAPAGLIFLOZIN PROPANEDIOL MONOH [Concomitant]
  15. FLUTICASONE [Concomitant]
     Active Substance: FLUTICASONE
     Dosage: INHALER
  16. INDOMETHACIN [Concomitant]
     Active Substance: INDOMETHACIN
  17. KETOCONAZOLE [Concomitant]
     Active Substance: KETOCONAZOLE
  18. LAMOTRIGINE [Concomitant]
     Active Substance: LAMOTRIGINE
  19. METFORMIN [Concomitant]
     Active Substance: METFORMIN HYDROCHLORIDE
  20. VITAMINS [Concomitant]
     Active Substance: VITAMINS
  21. OMEPRAZOLE [Concomitant]
     Active Substance: OMEPRAZOLE
  22. SILDENAFIL [Concomitant]
     Active Substance: SILDENAFIL
  23. SPIRONOLACTONE [Concomitant]
     Active Substance: SPIRONOLACTONE
  24. INSULIN GLARGINE [Concomitant]
     Active Substance: INSULIN GLARGINE
  25. DULAGLUTIDE [Concomitant]
     Active Substance: DULAGLUTIDE
  26. VITAMIN D NOS [Concomitant]
     Active Substance: VITAMIN D NOS
  27. VILANTEROL [Concomitant]
     Active Substance: VILANTEROL
     Dosage: INHALER
  28. MIFEPRISTONE [Suspect]
     Active Substance: MIFEPRISTONE
     Indication: Cushing^s syndrome
     Route: 048
     Dates: start: 202209, end: 202211
  29. MIFEPRISTONE [Suspect]
     Active Substance: MIFEPRISTONE
     Indication: Cushing^s syndrome
     Route: 048
     Dates: start: 202211

REACTIONS (19)
  - Hypothyroidism [Unknown]
  - COVID-19 [Recovering/Resolving]
  - Blood glucose increased [Not Recovered/Not Resolved]
  - Bacterial infection [Unknown]
  - Rotator cuff syndrome [Not Recovered/Not Resolved]
  - Condition aggravated [Unknown]
  - Blood sodium decreased [Unknown]
  - Nasal congestion [Unknown]
  - Malaise [Unknown]
  - Arthralgia [Not Recovered/Not Resolved]
  - Pain in extremity [Unknown]
  - Myalgia [Unknown]
  - Blood glucose decreased [Not Recovered/Not Resolved]
  - Somnolence [Unknown]
  - Nausea [Not Recovered/Not Resolved]
  - Fatigue [Not Recovered/Not Resolved]
  - Sleep disorder [Unknown]
  - Vomiting [Unknown]
  - Product dose omission issue [Unknown]

NARRATIVE: CASE EVENT DATE: 20220101
